FAERS Safety Report 21460999 (Version 1)
Quarter: 2022Q4

REPORT INFORMATION
  Report Type: Other
  Country: JP (occurrence: None)
  Receive Date: 20221015
  Receipt Date: 20221015
  Transmission Date: 20230113
  Serious: Yes (Hospitalization, Other)
  Sender: FDA-Public Use
  Company Number: JP-Square-000104

PATIENT
  Age: 72 Year
  Sex: Female

DRUGS (5)
  1. ACYCLOVIR [Suspect]
     Active Substance: ACYCLOVIR
     Indication: Varicella zoster pneumonia
     Dosage: 1000 MG
     Route: 042
  2. AMPICILLIN AND SULBACTAM [Concomitant]
     Active Substance: AMPICILLIN SODIUM\SULBACTAM SODIUM
     Indication: Pneumonia bacterial
     Dosage: 3 G INTRAVENOUSLY EVERY 8 HOURS
     Route: 042
  3. ACYCLOVIR [Suspect]
     Active Substance: ACYCLOVIR
     Indication: Varicella zoster pneumonia
     Dosage: 750 MG/DAY
     Route: 042
  4. ACYCLOVIR [Suspect]
     Active Substance: ACYCLOVIR
     Indication: Varicella zoster pneumonia
     Dosage: 1500 MG/DAY
     Route: 042
  5. ACYCLOVIR [Suspect]
     Active Substance: ACYCLOVIR
     Indication: Varicella zoster pneumonia
     Dosage: 500 MG
     Route: 042

REACTIONS (6)
  - Varicella zoster pneumonia [Recovered/Resolved]
  - Condition aggravated [Recovered/Resolved]
  - Varicella zoster virus infection [Recovering/Resolving]
  - Disease recurrence [Recovering/Resolving]
  - Meningoencephalitis viral [Unknown]
  - Facial paralysis [Recovering/Resolving]
